FAERS Safety Report 5397683-9 (Version None)
Quarter: 2007Q3

REPORT INFORMATION
  Report Type: 
  Country: None (occurrence: None)
  Receive Date: 20070723
  Receipt Date: 20070723
  Transmission Date: 20080115
  Serious: Yes (Hospitalization)
  Sender: FDA-Public Use
  Company Number: None

PATIENT
  Age: 83 Year
  Sex: Female
  Weight: 49.8957 kg

DRUGS (12)
  1. ALLOPURINOL [Suspect]
     Dosage: 300MG DAILY PO
     Route: 048
     Dates: start: 20050729, end: 20070716
  2. ATACAND [Suspect]
     Dosage: 32MG DAILY PO
     Route: 048
     Dates: start: 20050729, end: 20070716
  3. METFORMIN HCL [Concomitant]
  4. AVAPRO [Concomitant]
  5. GLIPIZIDE [Concomitant]
  6. METOPROL [Concomitant]
  7. MIRTAZAPINE [Concomitant]
  8. PRILOSEC [Concomitant]
  9. AMLODIPINE [Concomitant]
  10. AROMASIN [Concomitant]
  11. ASPIRIN [Concomitant]
  12. CLONIDINE [Concomitant]

REACTIONS (1)
  - ADENOCARCINOMA PANCREAS [None]
